FAERS Safety Report 8272473-8 (Version None)
Quarter: 2012Q2

REPORT INFORMATION
  Report Type: 
  Country: None (occurrence: None)
  Receive Date: 20120410
  Receipt Date: 20120331
  Transmission Date: 20120825
  Serious: Yes (Hospitalization)
  Sender: FDA-Public Use
  Company Number: NL-FRI-1000029362

PATIENT
  Age: 81 Year
  Sex: Female
  Weight: 60 kg

DRUGS (9)
  1. CITALOPRAM HYDROBROMIDE [Suspect]
     Dosage: 10 MG
     Route: 048
     Dates: start: 20120208
  2. LEXAPRO [Suspect]
     Indication: DEPRESSION
  3. CITALOPRAM HYDROBROMIDE [Suspect]
     Indication: ANXIETY
     Dosage: 20 MG
     Route: 048
     Dates: start: 20111214, end: 20120118
  4. ALPRAZOLAM [Concomitant]
     Route: 048
  5. OXAZEPAM [Concomitant]
  6. CITALOPRAM HYDROBROMIDE [Suspect]
     Dosage: 20 MG
     Route: 048
  7. CITALOPRAM HYDROBROMIDE [Suspect]
     Indication: DEPRESSION
  8. CITALOPRAM HYDROBROMIDE [Suspect]
     Dosage: 20 MG
     Route: 048
     Dates: start: 20120125, end: 20120207
  9. LEXAPRO [Suspect]
     Indication: ANXIETY
     Dosage: 10 MG
     Route: 048
     Dates: start: 20120119, end: 20120124

REACTIONS (7)
  - NERVOUSNESS [None]
  - TENSION [None]
  - MALAISE [None]
  - FEELING OF DESPAIR [None]
  - CONDITION AGGRAVATED [None]
  - ANXIETY [None]
  - NAUSEA [None]
